FAERS Safety Report 6732850-0 (Version None)
Quarter: 2010Q2

REPORT INFORMATION
  Report Type: 
  Country: None (occurrence: None)
  Receive Date: 20100519
  Receipt Date: 20100507
  Transmission Date: 20101027
  Serious: Yes (Death)
  Sender: FDA-Public Use
  Company Number: US-ELI_LILLY_AND_COMPANY-US201005002308

PATIENT

DRUGS (1)
  1. ZYPREXA [Suspect]
     Dosage: 30 MG, UNK

REACTIONS (3)
  - DEATH [None]
  - DRUG LEVEL INCREASED [None]
  - OVERDOSE [None]
